FAERS Safety Report 11074015 (Version 1)
Quarter: 2015Q2

REPORT INFORMATION
  Report Type: Report from Study
  Country: FR (occurrence: FR)
  Receive Date: 20150429
  Receipt Date: 20150429
  Transmission Date: 20150821
  Serious: Yes (Death, Life-Threatening)
  Sender: FDA-Public Use
  Company Number: FR-ROCHE-671095

PATIENT
  Age: 69 Year
  Sex: Female
  Weight: 79 kg

DRUGS (5)
  1. TAXOTERE [Suspect]
     Active Substance: DOCETAXEL
     Indication: BREAST CANCER
     Route: 042
  2. TAHOR [Concomitant]
     Active Substance: ATORVASTATIN CALCIUM
     Indication: HYPERCHOLESTEROLAEMIA
     Route: 048
  3. CAPECITABINE. [Suspect]
     Active Substance: CAPECITABINE
     Indication: BREAST CANCER
     Dosage: DOSE GIVEN AT LAST ADMINSTRATION: 2000 MG. CUMULATIVE DOSE: 1508 MG, 825MG/M2, 2X1 DAY
     Route: 048
  4. VEINAMITOL [Concomitant]
     Active Substance: TROXERUTIN
     Indication: PERIPHERAL VENOUS DISEASE
     Route: 048
  5. FEMARA [Suspect]
     Active Substance: LETROZOLE
     Indication: BREAST CANCER
     Dosage: UNKNOWN CUMULATIVE DOSE.
     Route: 048
     Dates: start: 20090420, end: 20091123

REACTIONS (1)
  - Acute myeloid leukaemia [Fatal]

NARRATIVE: CASE EVENT DATE: 20091123
